FAERS Safety Report 22113872 (Version 1)
Quarter: 2023Q1

REPORT INFORMATION
  Report Type: Spontaneous
  Country: CA (occurrence: CA)
  Receive Date: 20230320
  Receipt Date: 20230320
  Transmission Date: 20230418
  Serious: Yes (Other)
  Sender: FDA-Public Use
  Company Number: CA-JNJFOC-20230347844

PATIENT
  Age: 78 Year
  Sex: Male
  Weight: 105 kg

DRUGS (24)
  1. REMICADE [Suspect]
     Active Substance: INFLIXIMAB
     Indication: Colitis ulcerative
     Route: 041
  2. INFLIXIMAB [Suspect]
     Active Substance: INFLIXIMAB
     Indication: Colitis ulcerative
     Route: 042
  3. INFLIXIMAB [Suspect]
     Active Substance: INFLIXIMAB
     Route: 042
  4. INFLIXIMAB [Suspect]
     Active Substance: INFLIXIMAB
     Route: 042
  5. INFLIXIMAB [Suspect]
     Active Substance: INFLIXIMAB
     Route: 042
  6. INFLIXIMAB [Suspect]
     Active Substance: INFLIXIMAB
     Route: 042
  7. INFLIXIMAB [Suspect]
     Active Substance: INFLIXIMAB
     Route: 042
  8. INFLIXIMAB [Suspect]
     Active Substance: INFLIXIMAB
     Route: 042
  9. INFLIXIMAB [Suspect]
     Active Substance: INFLIXIMAB
     Route: 042
  10. INFLIXIMAB [Suspect]
     Active Substance: INFLIXIMAB
     Route: 042
  11. ASPIRIN [Concomitant]
     Active Substance: ASPIRIN
  12. ASPIRIN [Concomitant]
     Active Substance: ASPIRIN
  13. ALLOPURINOL [Concomitant]
     Active Substance: ALLOPURINOL
  14. APO-METOPROLOL (TYPE L) [Concomitant]
  15. CALCIUM [Concomitant]
     Active Substance: CALCIUM
  16. CITALOPRAM [Concomitant]
     Active Substance: CITALOPRAM HYDROBROMIDE
  17. ESOMEPRAZOLE MAGNESIUM [Concomitant]
     Active Substance: ESOMEPRAZOLE MAGNESIUM
  18. LANTUS [Concomitant]
     Active Substance: INSULIN GLARGINE
     Route: 058
  19. MESALAMINE [Concomitant]
     Active Substance: MESALAMINE
  20. NITROGLYCERIN [Concomitant]
     Active Substance: NITROGLYCERIN
     Route: 060
  21. RAMIPRIL [Concomitant]
     Active Substance: RAMIPRIL
  22. ROSUVASTATIN [Concomitant]
     Active Substance: ROSUVASTATIN
  23. AMLODIPINE BESYLATE [Concomitant]
     Active Substance: AMLODIPINE BESYLATE
  24. TAMSULOSIN HYDROCHLORIDE [Concomitant]
     Active Substance: TAMSULOSIN HYDROCHLORIDE

REACTIONS (2)
  - Condition aggravated [Not Recovered/Not Resolved]
  - Off label use [Not Recovered/Not Resolved]
